FAERS Safety Report 9658997 (Version 3)
Quarter: 2013Q4

REPORT INFORMATION
  Report Type: Report from Study
  Country: CA (occurrence: CA)
  Receive Date: 20131031
  Receipt Date: 20131121
  Transmission Date: 20140711
  Serious: Yes (Death, Life-Threatening)
  Sender: FDA-Public Use
  Company Number: CA-ROCHE-1263529

PATIENT
  Age: 72 Year
  Sex: Male

DRUGS (9)
  1. ZELBORAF [Suspect]
     Indication: METASTATIC MALIGNANT MELANOMA
     Route: 048
     Dates: start: 201307
  2. ZELBORAF [Suspect]
     Route: 048
  3. ZOCOR [Concomitant]
  4. PANTOLOC [Concomitant]
  5. QUETIAPINE [Concomitant]
  6. FUROSEMIDE [Concomitant]
  7. FRAGMIN [Concomitant]
  8. PROCHLORPERAZINE [Concomitant]
  9. NITRO SPRAY [Concomitant]

REACTIONS (8)
  - Metastases to central nervous system [Fatal]
  - Haemorrhage intracranial [Fatal]
  - Cerebrovascular accident [Fatal]
  - Headache [Fatal]
  - Loss of consciousness [Fatal]
  - Arthralgia [Not Recovered/Not Resolved]
  - Pulmonary embolism [Unknown]
  - Rash generalised [Recovering/Resolving]
